FAERS Safety Report 14967403 (Version 2)
Quarter: 2018Q2

REPORT INFORMATION
  Report Type: Report from Study
  Country: MX (occurrence: MX)
  Receive Date: 20180604
  Receipt Date: 20180622
  Transmission Date: 20180711
  Serious: Yes (Other)
  Sender: FDA-Public Use
  Company Number: MX-AMGEN-MEXSL2018073527

PATIENT
  Age: 61 Year
  Sex: Female

DRUGS (5)
  1. PARACETAMOL [Concomitant]
     Active Substance: ACETAMINOPHEN
     Indication: OSTEOARTHRITIS
     Dosage: UNK
  2. LIVIAL [Concomitant]
     Active Substance: TIBOLONE
     Dosage: UNK
  3. CALCIUM CITRATE + D [Concomitant]
     Dosage: UNK
  4. VITAMINS [Concomitant]
     Active Substance: VITAMINS
     Dosage: UNK
  5. PROLIA [Suspect]
     Active Substance: DENOSUMAB
     Indication: OSTEOARTHRITIS
     Dosage: 60 UNK, Q6MO
     Route: 065
     Dates: start: 2012, end: 201706

REACTIONS (3)
  - Gastric ulcer [Unknown]
  - Off label use [Unknown]
  - Hernia hiatus repair [Unknown]

NARRATIVE: CASE EVENT DATE: 201710
